FAERS Safety Report 10628692 (Version 1)
Quarter: 2014Q4

REPORT INFORMATION
  Report Type: Spontaneous
  Country: US (occurrence: US)
  Receive Date: 20141205
  Receipt Date: 20141205
  Transmission Date: 20150529
  Serious: No
  Sender: FDA-Public Use
  Company Number: US-BRISTOL-MYERS SQUIBB COMPANY-21553821

PATIENT
  Age: 57 Year
  Sex: Male

DRUGS (1)
  1. ABILIFY [Suspect]
     Active Substance: ARIPIPRAZOLE
     Indication: DISTURBANCE IN ATTENTION
     Dosage: INITIAL DOSE 5MG.?IN 28 OR 29OCT14 DOSE REDUCED TO 5MG
     Route: 048
     Dates: start: 201408

REACTIONS (4)
  - Lethargy [Unknown]
  - Tremor [Not Recovered/Not Resolved]
  - Disturbance in attention [Unknown]
  - Off label use [Unknown]

NARRATIVE: CASE EVENT DATE: 2014
